FAERS Safety Report 17270220 (Version 2)
Quarter: 2022Q1

REPORT INFORMATION
  Report Type: Spontaneous
  Country: US (occurrence: US)
  Receive Date: 20200114
  Receipt Date: 20220117
  Transmission Date: 20220423
  Serious: Yes (Disabling)
  Sender: FDA-Public Use
  Company Number: US-TEVA-2020-US-1168681

PATIENT
  Age: 46 Year
  Sex: Female

DRUGS (7)
  1. TAXOTERE [Suspect]
     Active Substance: DOCETAXEL
     Dates: start: 20120807, end: 20121127
  2. DOCETAXEL [Suspect]
     Active Substance: DOCETAXEL
     Indication: Breast cancer female
     Dosage: 140 MG; NUMBER OF CYCLE 6; EVERY 3 WEEKS
     Route: 065
     Dates: start: 20120807, end: 20121127
  3. DOCETAXEL [Suspect]
     Active Substance: DOCETAXEL
     Indication: Breast cancer female
     Dosage: 140 MG; NUMBER OF CYCLE 6; EVERY 3 WEEKS
     Route: 065
     Dates: start: 20120807, end: 20121127
  4. DOCETAXEL [Suspect]
     Active Substance: DOCETAXEL
     Indication: Breast cancer female
     Dosage: 140 MG; NUMBER OF CYCLE 6; EVERY 3 WEEKS
     Route: 065
     Dates: start: 20120807, end: 20121127
  5. DOCETAXEL [Suspect]
     Active Substance: DOCETAXEL
     Indication: Breast cancer female
     Dosage: 140 MG; NUMBER OF CYCLE 6; EVERY 3 WEEKS
     Route: 065
     Dates: start: 20120807, end: 20121127
  6. DOCETAXEL [Suspect]
     Active Substance: DOCETAXEL
     Indication: Breast cancer female
     Dosage: 140 MG; NUMBER OF CYCLE 6; EVERY 3 WEEKS
     Route: 065
     Dates: start: 20120807, end: 20121127
  7. DOCEFREZ [Suspect]
     Active Substance: DOCETAXEL ANHYDROUS
     Indication: Breast cancer female
     Dosage: 140 MG; NUMBER OF CYCLE 6; EVERY 3 WEEKS
     Route: 065
     Dates: start: 20120807, end: 20121127

REACTIONS (1)
  - Alopecia [Not Recovered/Not Resolved]

NARRATIVE: CASE EVENT DATE: 20120808
